FAERS Safety Report 8574400-2 (Version None)
Quarter: 2012Q3

REPORT INFORMATION
  Report Type: 
  Country: None (occurrence: None)
  Receive Date: 20120806
  Receipt Date: 20120802
  Transmission Date: 20120928
  Serious: Yes (Death, Hospitalization)
  Sender: FDA-Public Use
  Company Number: US-ROCHE-1067866

PATIENT
  Age: 85 Year
  Sex: Male
  Weight: 68.5 kg

DRUGS (6)
  1. MABTHERA [Suspect]
     Indication: B-CELL LYMPHOMA
     Route: 042
     Dates: start: 20120223, end: 20120322
  2. GLUCOSAMINE [Concomitant]
     Dates: start: 20110901, end: 20120425
  3. CRESTOR [Concomitant]
     Dates: start: 20000101, end: 20120425
  4. OXYCONTIN [Concomitant]
     Dates: start: 20100101, end: 20120425
  5. INOTUZUMAB OZOGAMICIN [Suspect]
     Indication: B-CELL LYMPHOMA
     Route: 042
     Dates: start: 20120224, end: 20120323
  6. ALLOPURINOL [Concomitant]
     Dates: start: 20120209, end: 20120425

REACTIONS (4)
  - FATIGUE [None]
  - DISEASE PROGRESSION [None]
  - DEHYDRATION [None]
  - NON-HODGKIN'S LYMPHOMA [None]
